FAERS Safety Report 4509350-1 (Version None)
Quarter: 2004Q4

REPORT INFORMATION
  Report Type: 
  Country: None (occurrence: None)
  Receive Date: 20041123
  Receipt Date: 20041119
  Transmission Date: 20050328
  Serious: Yes (Life-Threatening, Hospitalization)
  Sender: FDA-Public Use
  Company Number: FR-MERCK-0411FRA00075

PATIENT
  Age: 61 Year
  Sex: Male
  Weight: 110 kg

DRUGS (6)
  1. PRIMAXIN [Suspect]
     Route: 042
     Dates: start: 20041009, end: 20041016
  2. METRONIDAZOLE [Concomitant]
     Route: 042
     Dates: start: 20041009
  3. PRAVASTATIN SODIUM [Concomitant]
     Indication: HYPERCHOLESTEROLAEMIA
     Route: 048
  4. FLUINDIONE [Concomitant]
     Indication: THROMBOSIS PROPHYLAXIS
     Route: 048
  5. HYDROCHLOROTHIAZIDE [Concomitant]
     Indication: CARDIAC FAILURE CONGESTIVE
     Route: 048
  6. FUROSEMIDE [Concomitant]
     Indication: CARDIAC FAILURE CONGESTIVE
     Route: 048

REACTIONS (2)
  - CARDIO-RESPIRATORY ARREST [None]
  - GRAND MAL CONVULSION [None]
